FAERS Safety Report 7449843-0 (Version None)
Quarter: 2011Q2

REPORT INFORMATION
  Report Type: 
  Country: None (occurrence: None)
  Receive Date: 20110502
  Receipt Date: 20110414
  Transmission Date: 20111010
  Serious: Yes (Hospitalization, Other)
  Sender: FDA-Public Use
  Company Number: US-BAYER-2010-003057

PATIENT
  Age: 51 Year
  Sex: Female
  Weight: 61.678 kg

DRUGS (2)
  1. YAZ [Suspect]
     Indication: MENOPAUSE
     Dosage: UNK
     Route: 048
     Dates: start: 20080801, end: 20081101
  2. YASMIN [Suspect]
     Indication: MENOPAUSE
     Dosage: UNK
     Route: 048
     Dates: start: 20080801, end: 20081101

REACTIONS (5)
  - PAIN [None]
  - INJURY [None]
  - POST THROMBOTIC SYNDROME [None]
  - DEEP VEIN THROMBOSIS [None]
  - VENOUS INSUFFICIENCY [None]
